FAERS Safety Report 4816431-1 (Version None)
Quarter: 2005Q4

REPORT INFORMATION
  Report Type: 
  Country: None (occurrence: None)
  Receive Date: 20051028
  Receipt Date: 20051013
  Transmission Date: 20060501
  Serious: Yes (Hospitalization)
  Sender: FDA-Public Use
  Company Number: CIP05002196

PATIENT
  Age: 70 Year
  Sex: Female

DRUGS (5)
  1. DIDRONEL [Suspect]
     Indication: OSTEOPOROSIS
     Dosage: 200 MG DAILY; ORAL
     Route: 048
     Dates: start: 20011101, end: 20050828
  2. WARFARIN [Concomitant]
  3. FAMOTIDINE [Concomitant]
  4. PABLON-1 (PARACETAMOL, METHYLEPHEDRINE HYDROCHLORIDE-DL, GUAIFENESIN, [Concomitant]
  5. OTHER COMBINATIONS OF NUTRIENTS [Concomitant]

REACTIONS (9)
  - BLOOD IMMUNOGLOBULIN G INCREASED [None]
  - BONE MARROW FAILURE [None]
  - EOSINOPHIL COUNT INCREASED [None]
  - HAEMORRHAGE SUBCUTANEOUS [None]
  - HELICOBACTER PYLORI IDENTIFICATION TEST POSITIVE [None]
  - IDIOPATHIC THROMBOCYTOPENIC PURPURA [None]
  - PRURITUS [None]
  - RED BLOOD CELL COUNT INCREASED [None]
  - WHITE BLOOD CELL COUNT INCREASED [None]
